FAERS Safety Report 6015100-2 (Version None)
Quarter: 2008Q4

REPORT INFORMATION
  Report Type: 
  Country: None (occurrence: None)
  Receive Date: 20081222
  Receipt Date: 20081215
  Transmission Date: 20090506
  Serious: Yes (Hospitalization)
  Sender: FDA-Public Use
  Company Number: CH-BRISTOL-MYERS SQUIBB COMPANY-14448757

PATIENT
  Age: 62 Year
  Sex: Male

DRUGS (6)
  1. CETUXIMAB [Suspect]
     Indication: OESOPHAGEAL CARCINOMA
     Dosage: INITIAL INFUSION ON 02-DEC-2008, 400 MG/M, 1/1WK.
     Route: 042
     Dates: start: 20081202
  2. CISPLATIN [Suspect]
     Indication: OESOPHAGEAL CARCINOMA
     Route: 042
     Dates: start: 20081202
  3. DOCETAXEL [Suspect]
     Indication: OESOPHAGEAL CARCINOMA
     Route: 042
     Dates: start: 20081202
  4. CORDARONE [Concomitant]
  5. FRAXIPARINE [Concomitant]
     Route: 058
  6. ZOFRAN [Concomitant]

REACTIONS (3)
  - DYSPHAGIA [None]
  - NAUSEA [None]
  - VOMITING [None]
